FAERS Safety Report 7060085-3 (Version None)
Quarter: 2010Q4

REPORT INFORMATION
  Report Type: 
  Country: None (occurrence: None)
  Receive Date: 20101025
  Receipt Date: 20101014
  Transmission Date: 20110411
  Serious: Yes (Other)
  Sender: FDA-Public Use
  Company Number: US-ASTRAZENECA-2010SE37448

PATIENT
  Age: 568 Month
  Sex: Female
  Weight: 99.8 kg

DRUGS (5)
  1. SEROQUEL [Suspect]
     Indication: BIPOLAR DISORDER
     Route: 048
     Dates: start: 20060101
  2. TRILEPTAL [Concomitant]
     Indication: AFFECTIVE DISORDER
     Dates: start: 20080301
  3. LITHIUM [Concomitant]
     Dosage: 600 MG QAM, 900 MG QPM
  4. KLONOPIN [Concomitant]
     Indication: ANXIETY
     Dates: start: 20080301
  5. TRAZODONE HCL [Concomitant]
     Dosage: 1/2 TO 1
     Route: 048
     Dates: start: 20080301

REACTIONS (7)
  - BIPOLAR DISORDER [None]
  - BLOOD GLUCOSE INCREASED [None]
  - HYPERSOMNIA [None]
  - INAPPROPRIATE SCHEDULE OF DRUG ADMINISTRATION [None]
  - MICTURITION DISORDER [None]
  - THIRST [None]
  - WEIGHT INCREASED [None]
